FAERS Safety Report 6185855-5 (Version None)
Quarter: 2009Q2

REPORT INFORMATION
  Report Type: 
  Country: None (occurrence: None)
  Receive Date: 20090511
  Receipt Date: 20090501
  Transmission Date: 20091009
  Serious: Yes (Hospitalization)
  Sender: FDA-Public Use
  Company Number: A0782960A

PATIENT
  Age: 38 Year
  Sex: Male
  Weight: 86.4 kg

DRUGS (4)
  1. AVANDIA [Suspect]
     Indication: DIABETES MELLITUS
     Dosage: 4MG PER DAY
     Route: 048
     Dates: start: 20051001, end: 20071101
  2. AVANDAMET [Suspect]
     Indication: DIABETES MELLITUS
     Route: 048
     Dates: start: 20021201, end: 20041001
  3. GLUCOTROL [Concomitant]
  4. TOPROL-XL [Concomitant]

REACTIONS (3)
  - HYPERLIPIDAEMIA [None]
  - MYOCARDIAL INFARCTION [None]
  - WEIGHT INCREASED [None]
